FAERS Safety Report 5194756-0 (Version None)
Quarter: 2006Q4

REPORT INFORMATION
  Report Type: 
  Country: None (occurrence: None)
  Receive Date: 20061229
  Receipt Date: 20060502
  Transmission Date: 20070319
  Serious: Yes (Hospitalization)
  Sender: FDA-Public Use
  Company Number: US-ELI_LILLY_AND_COMPANY-US200608005572

PATIENT
  Sex: Female
  Weight: 115.65 kg

DRUGS (9)
  1. ZYPREXA [Suspect]
     Indication: SCHIZOPHRENIA
     Dosage: 20 MG, DAILY (1/D)
     Dates: start: 19980101, end: 20060201
  2. ARIPIPRAZOLE [Concomitant]
     Dates: start: 20050301
  3. DEPAKOTE [Concomitant]
     Dates: start: 20000101
  4. LITHIUM CARBONATE [Concomitant]
     Dates: start: 19950101
  5. GLYBURIDE [Concomitant]
     Dates: start: 20010101
  6. INSULIN [Concomitant]
     Dates: start: 19910101
  7. METFORMIN HCL [Concomitant]
     Dates: start: 19960101
  8. ROSIGLITAZONE [Concomitant]
     Dates: start: 20040101
  9. ATENOLOL [Concomitant]
     Dates: start: 20010101

REACTIONS (4)
  - CARDIAC FAILURE CONGESTIVE [None]
  - DIABETIC RETINOPATHY [None]
  - HYPERGLYCAEMIA [None]
  - PULMONARY EMBOLISM [None]
